FAERS Safety Report 6639068-0 (Version None)
Quarter: 2010Q1

REPORT INFORMATION
  Report Type: 
  Country: None (occurrence: None)
  Receive Date: 20100317
  Receipt Date: 20100312
  Transmission Date: 20100710
  Serious: Yes (Hospitalization)
  Sender: FDA-Public Use
  Company Number: US-B.I. PHARMACEUTICALS,INC./RIDGEFIELD-2010-BP-02923BP

PATIENT
  Age: 74 Year
  Sex: Male

DRUGS (2)
  1. DULCOLAX [Suspect]
     Indication: CONSTIPATION
     Dosage: 15 MG
     Route: 048
     Dates: start: 20100310, end: 20100310
  2. COZAAR [Concomitant]

REACTIONS (3)
  - ABDOMINAL PAIN [None]
  - DIZZINESS [None]
  - HYPOTENSION [None]
